FAERS Safety Report 14820527 (Version 1)
Quarter: 2018Q2

REPORT INFORMATION
  Report Type: Spontaneous
  Country: ES (occurrence: ES)
  Receive Date: 20180427
  Receipt Date: 20180427
  Transmission Date: 20180711
  Serious: Yes (Hospitalization)
  Sender: FDA-Public Use
  Company Number: ES-AUROBINDO-AUR-APL-2018-022494

PATIENT
  Age: 48 Year
  Sex: Female

DRUGS (4)
  1. CLONAZEPAM. [Suspect]
     Active Substance: CLONAZEPAM
     Indication: ADJUSTMENT DISORDER
     Dosage: 8-10 MG
     Route: 065
  2. PREGABALIN. [Concomitant]
     Active Substance: PREGABALIN
     Indication: DETOXIFICATION
     Dosage: 75 MILLIGRAM
     Route: 050
  3. DIAZEPAM. [Suspect]
     Active Substance: DIAZEPAM
     Indication: ADJUSTMENT DISORDER
     Dosage: UNK UNK, ONCE A DAY
     Route: 065
  4. PAROXETINE 20MG [Suspect]
     Active Substance: PAROXETINE
     Indication: PRODUCT USED FOR UNKNOWN INDICATION
     Dosage: 20 MILLIGRAM
     Route: 065

REACTIONS (6)
  - Memory impairment [Recovering/Resolving]
  - Anxiety [Recovering/Resolving]
  - Cognitive disorder [Recovering/Resolving]
  - Irritability [Recovering/Resolving]
  - Drug use disorder [Recovered/Resolved]
  - Intentional product misuse [Unknown]
